FAERS Safety Report 5479669-9 (Version None)
Quarter: 2007Q4

REPORT INFORMATION
  Report Type: 
  Country: None (occurrence: None)
  Receive Date: 20071008
  Receipt Date: 20070927
  Transmission Date: 20080405
  Serious: Yes (Other)
  Sender: FDA-Public Use
  Company Number: B0489839A

PATIENT
  Age: 79 Year
  Sex: Male

DRUGS (1)
  1. RANITIDINE HCL [Suspect]
     Indication: DYSPEPSIA
     Dosage: 150MG TWICE PER DAY
     Route: 048

REACTIONS (6)
  - CHROMATURIA [None]
  - HEPATIC CYST [None]
  - HEPATITIS CHOLESTATIC [None]
  - JAUNDICE [None]
  - TRANSAMINASES INCREASED [None]
  - YELLOW SKIN [None]
